FAERS Safety Report 16234167 (Version 1)
Quarter: 2019Q2

REPORT INFORMATION
  Report Type: Spontaneous
  Country: US (occurrence: US)
  Receive Date: 20190319
  Receipt Date: 20190319
  Transmission Date: 20190711
  Serious: Yes (Hospitalization)
  Sender: FDA-Public Use
  Company Number: None

PATIENT
  Age: 71 Year
  Sex: Male

DRUGS (2)
  1. APIXABAN [Suspect]
     Active Substance: APIXABAN
     Indication: ATRIAL FIBRILLATION
     Route: 048
     Dates: start: 20181001
  2. ASPIRIN. [Suspect]
     Active Substance: ASPIRIN
     Indication: CEREBROVASCULAR OPERATION
     Route: 048
     Dates: start: 20060125

REACTIONS (5)
  - Gastritis [None]
  - Haematuria [None]
  - Anaemia [None]
  - Angiodysplasia [None]
  - Iron deficiency [None]

NARRATIVE: CASE EVENT DATE: 20181015
